FAERS Safety Report 14575850 (Version 1)
Quarter: 2018Q1

REPORT INFORMATION
  Report Type: Spontaneous
  Country: BA (occurrence: BA)
  Receive Date: 20180227
  Receipt Date: 20180227
  Transmission Date: 20180509
  Serious: Yes (Hospitalization, Other)
  Sender: FDA-Public Use
  Company Number: BA-ACCORD-063715

PATIENT
  Age: 43 Year
  Sex: Male

DRUGS (16)
  1. DIAZEPAM. [Concomitant]
     Active Substance: DIAZEPAM
     Dosage: DIASEPAM TBL. A 5 MG 3X1,??STRENGTH: 5 MG
  2. ETHAMBUTOL [Concomitant]
     Active Substance: ETHAMBUTOL HYDROCHLORIDE
     Indication: TUBERCULOSIS
     Dosage: FOR FIRST THREE MONTHS, AND FOR NEXT FIVE MONTHS??STRENGTH: 275 MG
  3. VALPROIC ACID. [Suspect]
     Active Substance: VALPROIC ACID
     Indication: EPILEPSY
     Dosage: STRENGTH: 300 MG
  4. CARBAMAZEPINE. [Suspect]
     Active Substance: CARBAMAZEPINE
     Indication: EPILEPSY
     Dosage: STRENGTH: 200 MG
  5. ISONIAZID/ISONIAZID CALCIUM PYRUVINATE/ISONIAZID SODIUM GLUCURONATE [Concomitant]
     Indication: TUBERCULOSIS
     Dosage: STRENGTH: 75 MG,??FOR NEXT FIVE MONTHS
  6. STREPTOMYCIN [Concomitant]
     Active Substance: STREPTOMYCIN\STREPTOMYCIN SULFATE
     Indication: TUBERCULOSIS
     Dosage: AMPOULE,??STRENGTH:750 MG
     Route: 030
  7. RIFAMPICIN [Concomitant]
     Active Substance: RIFAMPIN
     Indication: TUBERCULOSIS
     Dosage: FOR FIRST THREE MONTHS
  8. HALOPERIDOL. [Suspect]
     Active Substance: HALOPERIDOL
     Indication: PSYCHOTIC DISORDER
     Dosage: STRENGTH:  5 MG??HALOPERIDOL TBL. A 5 MG 1 PLUS 1 PLUS  2,??ALSO RECEIVED 2 DF
  9. ISONIAZID. [Concomitant]
     Active Substance: ISONIAZID
     Indication: TUBERCULOSIS
     Dosage: FOR NEXT FIVE MONTHS
  10. ETHAMBUTOL [Concomitant]
     Active Substance: ETHAMBUTOL HYDROCHLORIDE
     Indication: TUBERCULOSIS
     Dosage: FOR NEXT FIVE MONTHS
  11. PROMAZINE [Suspect]
     Active Substance: PROMAZINE
     Indication: PSYCHOTIC DISORDER
     Dosage: PROMAZINE TBL. A 100 MG 1 PLUS 1 PLUS 1.5,??STRENGTH: 100 MG
  12. BIPERIDEN [Concomitant]
     Active Substance: BIPERIDEN
     Dosage: STRENGTH: 2 MG
  13. PYRAZINAMIDE. [Concomitant]
     Active Substance: PYRAZINAMIDE
     Indication: TUBERCULOSIS
     Dosage: FOR FIRST THREE MONTHS,??STRENGTH: 400 MG
  14. LISINOPRIL. [Suspect]
     Active Substance: LISINOPRIL
     Indication: HYPERTENSION
     Dosage: STRENGTH: 10 MG
  15. RIFAMPICIN [Concomitant]
     Active Substance: RIFAMPIN
     Indication: TUBERCULOSIS
     Dosage: FOR NEXT FIVE MONTHS,??STRENGTH: 150 MG,??ALSO RECEIVED FOR FIRST THREE MONTHS
  16. AMOXICILLIN. [Concomitant]
     Active Substance: AMOXICILLIN
     Dosage: STRENGTH: 500 MG

REACTIONS (2)
  - Water intoxication [Recovered/Resolved]
  - Hyponatraemia [Recovered/Resolved]
